FAERS Safety Report 15901200 (Version 1)
Quarter: 2019Q1

REPORT INFORMATION
  Report Type: Spontaneous
  Country: US (occurrence: US)
  Receive Date: 20190109
  Receipt Date: 20190109
  Transmission Date: 20190417
  Serious: No
  Sender: FDA-Public Use
  Company Number: None

PATIENT
  Age: 77 Year
  Sex: Male
  Weight: 85.28 kg

DRUGS (1)
  1. PITAVASTATIN. [Suspect]
     Active Substance: PITAVASTATIN CALCIUM
     Indication: HYPERLIPIDAEMIA
     Dosage: 1/2 TAB EVERY DAY PO
     Route: 048
     Dates: start: 20181109, end: 20181203

REACTIONS (1)
  - Myalgia [None]

NARRATIVE: CASE EVENT DATE: 20181218
